FAERS Safety Report 5028433-3 (Version None)
Quarter: 2006Q2

REPORT INFORMATION
  Report Type: 
  Country: None (occurrence: None)
  Receive Date: 20060617
  Receipt Date: 20060322
  Transmission Date: 20061013
  Serious: Yes (Hospitalization)
  Sender: FDA-Public Use
  Company Number: US-GLAXOSMITHKLINE-A0598605A

PATIENT
  Age: 57 Year
  Sex: Female

DRUGS (7)
  1. AVANDIA [Suspect]
     Dosage: 8MG PER DAY
     Route: 048
     Dates: start: 20010301, end: 20060318
  2. GLYBURIDE [Concomitant]
  3. METFORMIN HCL [Concomitant]
  4. VALIUM [Concomitant]
     Dates: start: 20030601
  5. INSULIN [Concomitant]
     Dosage: 8UNIT PER DAY
     Dates: start: 20050101
  6. LIBRIUM [Concomitant]
  7. ANTI-ANXIETY MED- NAME UNKNOWN [Concomitant]

REACTIONS (12)
  - ABDOMINAL PAIN UPPER [None]
  - BLINDNESS [None]
  - BLINDNESS TRANSIENT [None]
  - CONTUSION [None]
  - EYE DISORDER [None]
  - EYE HAEMORRHAGE [None]
  - GASTRIC DISORDER [None]
  - GASTRIC HAEMORRHAGE [None]
  - HAEMATOCHEZIA [None]
  - NAUSEA [None]
  - RETINAL HAEMORRHAGE [None]
  - VISUAL ACUITY REDUCED [None]
